FAERS Safety Report 20411054 (Version 1)
Quarter: 2022Q1

REPORT INFORMATION
  Report Type: Spontaneous
  Country: US (occurrence: None)
  Receive Date: 20220201
  Receipt Date: 20220201
  Transmission Date: 20220424
  Serious: Yes (Other)
  Sender: FDA-Public Use
  Company Number: None

PATIENT
  Age: 53 Year
  Sex: Female
  Weight: 58.95 kg

DRUGS (1)
  1. INJECTAFER [Suspect]
     Active Substance: FERRIC CARBOXYMALTOSE
     Indication: Anaemia
     Route: 041
     Dates: start: 20211216, end: 20211216

REACTIONS (10)
  - Fatigue [None]
  - Dyspnoea [None]
  - Anxiety [None]
  - Akathisia [None]
  - Palpitations [None]
  - Myalgia [None]
  - Feeling abnormal [None]
  - Menstruation irregular [None]
  - Blood phosphorus decreased [None]
  - Restlessness [None]

NARRATIVE: CASE EVENT DATE: 20211222
